FAERS Safety Report 6347494-2 (Version None)
Quarter: 2009Q3

REPORT INFORMATION
  Report Type: 
  Country: None (occurrence: None)
  Receive Date: 20090910
  Receipt Date: 20090903
  Transmission Date: 20100115
  Serious: Yes (Hospitalization)
  Sender: FDA-Public Use
  Company Number: US-ELI_LILLY_AND_COMPANY-US200909000945

PATIENT
  Sex: Male

DRUGS (12)
  1. HUMALOG [Suspect]
     Indication: TYPE 2 DIABETES MELLITUS
     Dosage: 35 U, EACH MORNING
     Dates: start: 20070101
  2. HUMALOG MIX 75/25 [Suspect]
  3. BENICAR [Concomitant]
  4. METOLAZONE [Concomitant]
  5. LESCOL [Concomitant]
  6. PANTOPRAZOL [Concomitant]
  7. PLAVIX [Concomitant]
  8. METOPROLOL [Concomitant]
  9. POTASSIUM CHLORIDE [Concomitant]
  10. FOLIC ACID [Concomitant]
  11. ASPIRIN [Concomitant]
  12. LANTUS [Concomitant]

REACTIONS (8)
  - ABASIA [None]
  - CEREBROVASCULAR ACCIDENT [None]
  - DRUG DISPENSING ERROR [None]
  - GOUT [None]
  - MEMORY IMPAIRMENT [None]
  - MYOCARDIAL INFARCTION [None]
  - URINARY TRACT DISORDER [None]
  - WRONG DRUG ADMINISTERED [None]
